FAERS Safety Report 5265520-9 (Version None)
Quarter: 2007Q1

REPORT INFORMATION
  Report Type: 
  Country: None (occurrence: None)
  Receive Date: 20070314
  Receipt Date: 20070307
  Transmission Date: 20070707
  Serious: Yes (Other)
  Sender: FDA-Public Use
  Company Number: US-GILEAD-2006-0010601

PATIENT
  Age: 34 Year
  Sex: Female

DRUGS (5)
  1. TRUVADA [Suspect]
     Indication: HIV INFECTION
     Route: 048
  2. BACTRIM [Suspect]
  3. PROTONIX [Suspect]
  4. LEXIVA [Concomitant]
     Indication: HIV INFECTION
     Route: 048
  5. NORVIR [Concomitant]
     Indication: HIV INFECTION

REACTIONS (1)
  - ABORTION SPONTANEOUS [None]
